FAERS Safety Report 25945422 (Version 1)
Quarter: 2025Q4

REPORT INFORMATION
  Report Type: Spontaneous
  Country: US (occurrence: US)
  Receive Date: 20251021
  Receipt Date: 20251021
  Transmission Date: 20260117
  Serious: Yes (Other)
  Sender: ALCON
  Company Number: US-ALCON LABORATORIES-ALC2025US005669

PATIENT
  Sex: Female

DRUGS (2)
  1. SYSTANE PRO PF [Suspect]
     Active Substance: PROPYLENE GLYCOL
     Indication: Product used for unknown indication
     Dosage: UNK
     Route: 047
  2. SYSTANE PRO PF [Suspect]
     Active Substance: PROPYLENE GLYCOL
     Dosage: UNK
     Route: 047

REACTIONS (6)
  - Product contamination microbial [Unknown]
  - Wrong technique in product usage process [Unknown]
  - Product container issue [Unknown]
  - Product design issue [Unknown]
  - Product delivery mechanism issue [Unknown]
  - Product storage error [Unknown]
